FAERS Safety Report 12106014 (Version 1)
Quarter: 2016Q1

REPORT INFORMATION
  Report Type: Other
  Country: US (occurrence: US)
  Receive Date: 20160223
  Receipt Date: 20160223
  Transmission Date: 20160526
  Serious: Yes (Other)
  Sender: FDA-Public Use
  Company Number: US-GUTHY-RENKER LLC-1048294

PATIENT
  Age: 27 Year
  Sex: Female

DRUGS (4)
  1. PROACTIV SOLUTION OIL FREE MOISTURE SPF 15 MOISTURIZER [Suspect]
     Active Substance: OCTINOXATE\ZINC OXIDE
     Route: 061
     Dates: start: 20160116
  2. PROACTIV RENEWING CLEANSER [Suspect]
     Active Substance: BENZOYL PEROXIDE
     Indication: ACNE
     Route: 061
     Dates: start: 20160116
  3. PROACTIV SKIN LIGHTENING [Suspect]
     Active Substance: HYDROQUINONE
     Route: 061
     Dates: start: 20160116
  4. PROACTIV SOLUTION REPAIRING TREATMENT [Suspect]
     Active Substance: BENZOYL PEROXIDE
     Route: 061
     Dates: start: 20160116

REACTIONS (2)
  - Application site dryness [None]
  - Swelling face [Recovered/Resolved]

NARRATIVE: CASE EVENT DATE: 20160117
